FAERS Safety Report 15686442 (Version 4)
Quarter: 2021Q2

REPORT INFORMATION
  Report Type: Spontaneous
  Country: US (occurrence: US)
  Receive Date: 20181204
  Receipt Date: 20210528
  Transmission Date: 20210716
  Serious: Yes (Hospitalization, Other)
  Sender: FDA-Public Use
  Company Number: US-PFIZER INC-2018492261

PATIENT
  Age: 75 Year
  Sex: Female
  Weight: 71.67 kg

DRUGS (30)
  1. WARFARIN [WARFARIN SODIUM] [Concomitant]
     Active Substance: WARFARIN SODIUM
     Dosage: 8 MG, (2 TABLETS TOTAL 8 MG )
     Dates: start: 20190517
  2. WARFARIN [WARFARIN SODIUM] [Concomitant]
     Active Substance: WARFARIN SODIUM
     Dosage: 4 MG, (1 TABLETS TOTAL 4 MG )
     Dates: start: 20190518
  3. ALENDRONATE [Concomitant]
     Active Substance: ALENDRONATE SODIUM
     Dosage: 70 MG, WEEKLY (TAKE 1 TABLET (70 MG) BY MOUTH EVERY SEVEN DAYS.)
     Route: 048
  4. COLECALCIFEROL [Concomitant]
     Active Substance: CHOLECALCIFEROL
     Dosage: 1000 MG, DAILY (TAKE 1 TABLET (1000 UNITS) BY MOUTH ONCE DAILY)
     Route: 048
  5. XELJANZ [Suspect]
     Active Substance: TOFACITINIB CITRATE
     Indication: RHEUMATOID ARTHRITIS
     Dosage: 5 MG, 2X/DAY
     Route: 048
     Dates: start: 201806, end: 20181125
  6. WARFARIN [WARFARIN SODIUM] [Concomitant]
     Active Substance: WARFARIN SODIUM
     Dosage: 8 MG, (2 TABLETS TOTAL 8 MG )
     Dates: start: 20190515
  7. DILTIAZEM CD [Concomitant]
     Active Substance: DILTIAZEM
     Dosage: 120 MG, DAILY (TAKE 1 CAPSULE (120 MG) BY MOUTH ONCE DAILY)
     Route: 048
  8. POTASSIUM CHLORIDE. [Concomitant]
     Active Substance: POTASSIUM CHLORIDE
     Dosage: 40 MEQ, 1X/DAY (2 TABLETS)
     Route: 048
  9. SENNOSIDES. [Concomitant]
     Active Substance: SENNOSIDES
     Dosage: 8.6 MG, 1X/DAY (TAKE 1 TABLET (8.6 MG) BY MOUTH AT BEDTIME)
     Route: 048
  10. XELJANZ [Suspect]
     Active Substance: TOFACITINIB CITRATE
     Dosage: 5 MG, 2X/DAY (5 MG TWICE DAILY)
  11. FOLIC ACID. [Concomitant]
     Active Substance: FOLIC ACID
     Dosage: 1 DF, DAILY(TAKE 1 TABLET BY MOUTH DAILY)
     Route: 048
  12. DEXAMETHASONE W/NEOMYCIN/POLYMYXIN B [Concomitant]
     Active Substance: DEXAMETHASONE\NEOMYCIN\POLYMYXIN B
     Dosage: UNK UNK, 3X/DAY (3.5 MG/G?10,000 UNIT/G?0.1 %, PLACE IN THE LEFT EYE THREE TIMES DAILY)
     Route: 047
  13. WARFARIN [WARFARIN SODIUM] [Concomitant]
     Active Substance: WARFARIN SODIUM
     Dosage: 8 MG, (2 TABLETS TOTAL 8 MG )
     Dates: start: 20190516
  14. BUMETANIDE. [Concomitant]
     Active Substance: BUMETANIDE
     Dosage: 2 MG, DAILY (TAKE 1 TABLET (2 MG) BY MOUTH ONCE DAILY)
     Route: 048
  15. BUMETANIDE. [Concomitant]
     Active Substance: BUMETANIDE
     Dosage: 4 MG, DAILY
  16. GABAPENTIN. [Concomitant]
     Active Substance: GABAPENTIN
     Dosage: 400 MG, 2X/DAY
     Route: 048
  17. HYDROCODONE/ACETAMINOPHEN [Concomitant]
     Active Substance: ACETAMINOPHEN\HYDROCODONE
     Indication: PAIN
     Dosage: 1 DF, AS NEEDED (5?325 MG)
     Route: 048
  18. METOLAZONE. [Concomitant]
     Active Substance: METOLAZONE
     Dosage: 5 MG, UNK
  19. WARFARIN [WARFARIN SODIUM] [Concomitant]
     Active Substance: WARFARIN SODIUM
     Dosage: 8 MG, (2 TABLETS TOTAL 8 MG )
     Dates: start: 20190509
  20. WARFARIN [WARFARIN SODIUM] [Concomitant]
     Active Substance: WARFARIN SODIUM
     Dosage: 8 MG, (2 TABLETS TOTAL 8 MG )
     Dates: start: 20190520
  21. WARFARIN [WARFARIN SODIUM] [Concomitant]
     Active Substance: WARFARIN SODIUM
     Dosage: 4 MG, (1 TABLETS TOTAL 4 MG )
     Dates: start: 20190521
  22. SODIUM CHLORIDE. [Concomitant]
     Active Substance: SODIUM CHLORIDE
     Dosage: UNK
  23. WARFARIN [WARFARIN SODIUM] [Concomitant]
     Active Substance: WARFARIN SODIUM
     Dosage: 4 MG, (1 TABLETS TOTAL 4 MG )
     Dates: start: 20190514
  24. WARFARIN [WARFARIN SODIUM] [Concomitant]
     Active Substance: WARFARIN SODIUM
     Dosage: 8 MG, (2 TABLETS TOTAL 8 MG )
     Dates: start: 20190519
  25. PREDNISONE. [Concomitant]
     Active Substance: PREDNISONE
     Indication: HAEMOLYTIC ANAEMIA
     Dosage: 5 MG, DAILY (TAKE ONE 5 MG PILL AND ONE 2.5 MG PILL ONCE DAILY (TOTAL DOSE 7.5 MG))
  26. PREDNISONE. [Concomitant]
     Active Substance: PREDNISONE
     Dosage: 2.5 MG, DAILY (TAKE ONE 5 MG PILL AND ONE 2.5 MG PILL ONCE DAILY (TOTAL DOSE 7.5 MG))
  27. WARFARIN [WARFARIN SODIUM] [Concomitant]
     Active Substance: WARFARIN SODIUM
     Dosage: 8 MG, (2 TABLETS TOTAL 8 MG )
     Dates: start: 20190510
  28. WARFARIN [WARFARIN SODIUM] [Concomitant]
     Active Substance: WARFARIN SODIUM
     Dosage: 4 MG, (1 TABLETS TOTAL 4 MG )
     Dates: start: 20190511
  29. WARFARIN [WARFARIN SODIUM] [Concomitant]
     Active Substance: WARFARIN SODIUM
     Dosage: 8 MG, (2 TABLETS TOTAL 8 MG )
     Dates: start: 20190512
  30. WARFARIN [WARFARIN SODIUM] [Concomitant]
     Active Substance: WARFARIN SODIUM
     Dosage: 8 MG, (2 TABLETS TOTAL 8 MG )
     Dates: start: 20190513

REACTIONS (11)
  - Sinus disorder [Recovering/Resolving]
  - Limb injury [Not Recovered/Not Resolved]
  - Dry skin [Unknown]
  - Candida infection [Unknown]
  - Pain in extremity [Not Recovered/Not Resolved]
  - Cataract [Recovering/Resolving]
  - Speech disorder [Not Recovered/Not Resolved]
  - Pruritus [Unknown]
  - Epistaxis [Not Recovered/Not Resolved]
  - Blood cholesterol increased [Not Recovered/Not Resolved]
  - Rash macular [Unknown]

NARRATIVE: CASE EVENT DATE: 201806
